FAERS Safety Report 8889286 (Version 2)
Quarter: 2012Q4

REPORT INFORMATION
  Report Type: 
  Country: JP (occurrence: JP)
  Receive Date: 20121106
  Receipt Date: 20121115
  Transmission Date: 20130627
  Serious: Yes (Hospitalization, Other)
  Sender: FDA-Public Use
  Company Number: JP-PFIZER INC-2012246377

PATIENT
  Age: 72 Year
  Sex: Male
  Weight: 59 kg

DRUGS (3)
  1. CELECOX [Suspect]
     Indication: PAIN
     Dosage: 100 mg, 2x/day
     Route: 048
     Dates: start: 20120910, end: 20120914
  2. CELECOX [Suspect]
     Indication: LOW BACK PAIN
  3. FLOMOX [Suspect]
     Indication: ARTHRITIS
     Dosage: 100 mg, 3x/day
     Route: 048
     Dates: start: 20120910, end: 20120913

REACTIONS (1)
  - Platelet count decreased [Recovered/Resolved]
